FAERS Safety Report 16526476 (Version 1)
Quarter: 2019Q3

REPORT INFORMATION
  Report Type: Report from Study
  Country: US (occurrence: US)
  Receive Date: 20190703
  Receipt Date: 20190703
  Transmission Date: 20191004
  Serious: Yes (Other)
  Sender: FDA-Public Use
  Company Number: US-ACTELION-A-US2019-189221

PATIENT
  Age: 69 Year
  Sex: Female
  Weight: 61.68 kg

DRUGS (1)
  1. OPSUMIT [Suspect]
     Active Substance: MACITENTAN
     Indication: PULMONARY ARTERIAL HYPERTENSION
     Dosage: 10 MG, QD
     Route: 048

REACTIONS (7)
  - Vomiting [Unknown]
  - Fall [Unknown]
  - Nausea [Unknown]
  - Headache [Unknown]
  - Bronchitis [Unknown]
  - Rib fracture [Unknown]
  - Syncope [Unknown]

NARRATIVE: CASE EVENT DATE: 20190327
